FAERS Safety Report 6298070-1 (Version None)
Quarter: 2009Q3

REPORT INFORMATION
  Report Type: 
  Country: None (occurrence: None)
  Receive Date: 20090804
  Receipt Date: 20090804
  Transmission Date: 20100115
  Serious: Yes (Other)
  Sender: FDA-Public Use
  Company Number: None

PATIENT
  Age: 49 Year
  Sex: Female
  Weight: 190.9643 kg

DRUGS (1)
  1. SPIRIVA [Suspect]
     Indication: ASTHMA
     Dosage: 2 INHALATIONS ONCE A DAY INHAL
     Route: 055
     Dates: start: 20090726, end: 20090801

REACTIONS (11)
  - ARTHRALGIA [None]
  - BLOOD GLUCOSE INCREASED [None]
  - DEHYDRATION [None]
  - DEPRESSION [None]
  - DRY SKIN [None]
  - FLUID RETENTION [None]
  - INSOMNIA [None]
  - MUCOUS MEMBRANE DISORDER [None]
  - PRURITUS [None]
  - SWELLING FACE [None]
  - TREMOR [None]
